FAERS Safety Report 4776127-1 (Version None)
Quarter: 2005Q3

REPORT INFORMATION
  Report Type: 
  Country: None (occurrence: None)
  Receive Date: 20050922
  Receipt Date: 20050915
  Transmission Date: 20060218
  Serious: Yes (Hospitalization)
  Sender: FDA-Public Use
  Company Number: US-BRISTOL-MYERS SQUIBB COMPANY-13112883

PATIENT
  Age: 68 Year
  Sex: Male

DRUGS (4)
  1. CETUXIMAB [Suspect]
     Indication: OESOPHAGEAL CARCINOMA
     Dosage: 400 MG/M2 DAY 1, THEN 250 MG/M2 DAY 8,15,22,29,36. TOTAL DOSE=3556 MG. THERAPY START DATE 01-AUG-05.
     Dates: start: 20050906, end: 20050906
  2. CARBOPLATIN [Suspect]
     Indication: OESOPHAGEAL CARCINOMA
     Dosage: AUC 2 WEEKLY X 6, TOTAL DOSE 1704 MG. THERAPY START DATE 01-AUG-05.
     Route: 042
     Dates: start: 20050906, end: 20050906
  3. TAXOL [Suspect]
     Indication: OESOPHAGEAL CARCINOMA
     Dosage: 50 MG/M2 WEEKLY X 6 DOSES. TOTAL DOSE 654 MG. THERAPY START DATE 01-AUG-05.
     Dates: start: 20050906, end: 20050906
  4. RADIATION THERAPY [Suspect]
     Indication: OESOPHAGEAL CARCINOMA
     Dosage: 1.8 GY DAILY X 26.
     Dates: start: 20050908, end: 20050908

REACTIONS (4)
  - ATELECTASIS [None]
  - BLOOD MAGNESIUM DECREASED [None]
  - DEHYDRATION [None]
  - LUNG INFILTRATION [None]
